FAERS Safety Report 8832855 (Version 2)
Quarter: 2012Q4

REPORT INFORMATION
  Report Type: 
  Country: LT (occurrence: LT)
  Receive Date: 20121009
  Receipt Date: 20121113
  Transmission Date: 20130627
  Serious: Yes (Hospitalization)
  Sender: FDA-Public Use
  Company Number: LT-009507513-1112USA02138

PATIENT
  Age: 62 Year
  Sex: Male
  Weight: 105 kg

DRUGS (10)
  1. BLINDED INSULIN [Suspect]
     Indication: TYPE 2 DIABETES MELLITUS
     Dosage: UNK
     Route: 048
     Dates: start: 20091203
  2. BLINDED METFORMIN [Suspect]
     Indication: TYPE 2 DIABETES MELLITUS
     Dosage: UNK
     Route: 048
     Dates: start: 20091203
  3. BLINDED PIOGLITAZONE HYDROCHLORIDE [Suspect]
     Indication: TYPE 2 DIABETES MELLITUS
     Dosage: UNK
     Route: 048
     Dates: start: 20091203
  4. BLINDED PLACEBO [Suspect]
     Indication: TYPE 2 DIABETES MELLITUS
     Dosage: UNK
     Route: 048
     Dates: start: 20091203
  5. BLINDED POST TRIAL THERAPY [Suspect]
     Indication: TYPE 2 DIABETES MELLITUS
     Dosage: UNK
     Route: 048
     Dates: start: 20091203
  6. BLINDED PRE TRIAL THERAPY [Suspect]
     Indication: TYPE 2 DIABETES MELLITUS
     Dosage: UNK
     Route: 048
     Dates: start: 20091203
  7. BLINDED SITAGLIPTIN PHOSPHATE [Suspect]
     Indication: TYPE 2 DIABETES MELLITUS
     Dosage: UNK
     Route: 048
     Dates: start: 20091203
  8. LOSARTAN POTASSIUM [Concomitant]
     Indication: HYPERTENSION
     Dosage: total daily dose 100 mg
     Dates: start: 20091203
  9. NEBIVOLOL [Concomitant]
     Indication: HYPERTENSION
     Dosage: total daily 5 mg
     Dates: start: 20091203
  10. DOXAZOSIN MESYLATE [Concomitant]
     Indication: HYPERTENSION
     Dosage: total daily 4 mg
     Dates: start: 20091203

REACTIONS (1)
  - Hernia [Recovered/Resolved with Sequelae]
